FAERS Safety Report 13165709 (Version 1)
Quarter: 2017Q1

REPORT INFORMATION
  Report Type: Spontaneous
  Country: CA (occurrence: CA)
  Receive Date: 20170131
  Receipt Date: 20170131
  Transmission Date: 20170428
  Serious: Yes (Life-Threatening, Other)
  Sender: FDA-Public Use
  Company Number: CA-TEVA-734152ACC

PATIENT
  Age: 14 Year
  Sex: Female
  Weight: 43 kg

DRUGS (6)
  1. EMEND [Concomitant]
     Active Substance: APREPITANT
  2. ETOPOSIDE INJECTION, USP [Suspect]
     Active Substance: ETOPOSIDE
     Indication: NEOPLASM MALIGNANT
     Dosage: 136 MILLIGRAM DAILY;
     Route: 042
  3. GRAVOL [Concomitant]
     Active Substance: DIMENHYDRINATE
  4. ONDANSETRON [Concomitant]
     Active Substance: ONDANSETRON
  5. CISPLATIN INJECTION [Concomitant]
     Active Substance: CISPLATIN
  6. BLEOMYCIN SULPHATE FOR INJECTION USP [Suspect]
     Active Substance: BLEOMYCIN SULFATE
     Indication: NEOPLASM MALIGNANT
     Dosage: 20.5 UNITS, ONCE
     Route: 042

REACTIONS (6)
  - Erythema [Recovered/Resolved]
  - Face oedema [Recovered/Resolved]
  - Dyspnoea [Recovered/Resolved]
  - Emotional distress [Recovered/Resolved]
  - Rash macular [Recovered/Resolved]
  - Cough [Recovered/Resolved]
